FAERS Safety Report 7709283-3 (Version None)
Quarter: 2011Q3

REPORT INFORMATION
  Report Type: 
  Country: None (occurrence: None)
  Receive Date: 20110825
  Receipt Date: 20110822
  Transmission Date: 20111222
  Serious: Yes (Death)
  Sender: FDA-Public Use
  Company Number: PHEH2011US02385

PATIENT
  Sex: Male

DRUGS (14)
  1. VITAMIN E [Concomitant]
  2. PENTOXIFYLLINE [Concomitant]
  3. GABAPENTIN [Concomitant]
  4. ALBUTEROL SULFATE AUTOHALER [Concomitant]
  5. ADVAIR DISKUS 100/50 [Concomitant]
  6. DIOVAN [Concomitant]
  7. LIPITOR [Concomitant]
  8. TRICOR [Concomitant]
  9. CALCIUM CARBONATE [Concomitant]
  10. AVANDIA [Concomitant]
  11. ASCORBIC ACID [Concomitant]
  12. CRESTOR [Concomitant]
  13. PLAVIX [Concomitant]
  14. GLEEVEC [Suspect]
     Indication: CHRONIC MYELOID LEUKAEMIA
     Dosage: 400 MG, DAILY
     Route: 048
     Dates: start: 20080201

REACTIONS (1)
  - DEATH [None]
